FAERS Safety Report 14741808 (Version 1)
Quarter: 2018Q2

REPORT INFORMATION
  Report Type: Spontaneous
  Country: US (occurrence: US)
  Receive Date: 20180404
  Receipt Date: 20180404
  Transmission Date: 20180711
  Serious: Yes (Hospitalization)
  Sender: FDA-Public Use
  Company Number: None

PATIENT
  Age: 64 Year
  Sex: Female

DRUGS (15)
  1. ADDERALL [Concomitant]
     Active Substance: AMPHETAMINE ASPARTATE\AMPHETAMINE SULFATE\DEXTROAMPHETAMINE SACCHARATE\DEXTROAMPHETAMINE SULFATE
  2. MAXZIDE [Concomitant]
     Active Substance: HYDROCHLOROTHIAZIDE\TRIAMTERENE
  3. ZOFRAN [Concomitant]
     Active Substance: ONDANSETRON HYDROCHLORIDE
  4. OXYCONTIN [Concomitant]
     Active Substance: OXYCODONE HYDROCHLORIDE
  5. VITAMIN B6 [Concomitant]
     Active Substance: PYRIDOXINE HYDROCHLORIDE
  6. ROXICODONE [Concomitant]
     Active Substance: OXYCODONE HYDROCHLORIDE
  7. VOLTAREN [Concomitant]
     Active Substance: DICLOFENAC SODIUM
  8. LAMICTAL [Concomitant]
     Active Substance: LAMOTRIGINE
  9. FEMARA [Concomitant]
     Active Substance: LETROZOLE
  10. IBRANCE [Suspect]
     Active Substance: PALBOCICLIB
     Indication: BREAST CANCER
     Dosage: QD X 21 DAYS OUT OF 28 DAYS CYCLE BY MOUTH?
     Route: 048
     Dates: start: 20171116
  11. TYLENOL [Concomitant]
     Active Substance: ACETAMINOPHEN
  12. PRILOSEC [Concomitant]
     Active Substance: OMEPRAZOLE MAGNESIUM
  13. GLYCOLAX [Concomitant]
     Active Substance: POLYETHYLENE GLYCOL 3350
  14. ARIPIPRAZOLE. [Concomitant]
     Active Substance: ARIPIPRAZOLE
  15. DECADRON [Concomitant]
     Active Substance: DEXAMETHASONE

REACTIONS (2)
  - Influenza [None]
  - Pneumonia [None]

NARRATIVE: CASE EVENT DATE: 2018
